FAERS Safety Report 5804569-1 (Version None)
Quarter: 2008Q3

REPORT INFORMATION
  Report Type: 
  Country: None (occurrence: None)
  Receive Date: 20080707
  Receipt Date: 20080707
  Transmission Date: 20090109
  Serious: Yes (Hospitalization)
  Sender: FDA-Public Use
  Company Number: None

PATIENT
  Age: 78 Year
  Sex: Male

DRUGS (2)
  1. DIGOXIN [Suspect]
     Indication: ATRIAL FIBRILLATION
     Dosage: 0.25 MG EVERY DAY PO
     Route: 048
     Dates: start: 20080423, end: 20080701
  2. METOPROLOL [Suspect]
     Indication: ATRIAL FIBRILLATION
     Dosage: 25 MG BID PO
     Route: 048
     Dates: start: 20080423, end: 20080701

REACTIONS (5)
  - BLOOD POTASSIUM INCREASED [None]
  - BRADYCARDIA [None]
  - CARDIAC FAILURE CONGESTIVE [None]
  - NODAL RHYTHM [None]
  - THERAPEUTIC AGENT TOXICITY [None]
